FAERS Safety Report 11704003 (Version 1)
Quarter: 2015Q4

REPORT INFORMATION
  Report Type: Spontaneous
  Country: US (occurrence: None)
  Receive Date: 20151105
  Receipt Date: 20151105
  Transmission Date: 20160304
  Serious: Yes (Other)
  Sender: FDA-Public Use
  Company Number: None

PATIENT
  Age: 33 Year
  Sex: Female
  Weight: 71.67 kg

DRUGS (2)
  1. FOLIVANE-PRX DHA [Suspect]
     Active Substance: .ALPHA.-TOCOPHEROL\ASCORBIC ACID\CHOLECALCIFEROL\DOCONEXENT\DOCUSATE SODIUM\FOLIC ACID\IRON\PYRIDOXINE HYDROCHLORIDE\TRIBASIC CALCIUM PHOSPHATE
     Indication: VITAMIN SUPPLEMENTATION
     Dosage: 1
     Route: 048
  2. FOLIVANE-PRX DHA [Suspect]
     Active Substance: .ALPHA.-TOCOPHEROL\ASCORBIC ACID\CHOLECALCIFEROL\DOCONEXENT\DOCUSATE SODIUM\FOLIC ACID\IRON\PYRIDOXINE HYDROCHLORIDE\TRIBASIC CALCIUM PHOSPHATE
     Indication: PRENATAL CARE
     Dosage: 1
     Route: 048

REACTIONS (2)
  - Drug screen false positive [None]
  - Exposure during pregnancy [None]

NARRATIVE: CASE EVENT DATE: 20151103
